FAERS Safety Report 8491854-0 (Version None)
Quarter: 2012Q3

REPORT INFORMATION
  Report Type: 
  Country: None (occurrence: None)
  Receive Date: 20120706
  Receipt Date: 20110728
  Transmission Date: 20120928
  Serious: No
  Sender: FDA-Public Use
  Company Number: US-GLAXOSMITHKLINE-A0938799A

PATIENT
  Age: 4 Year
  Sex: Male

DRUGS (3)
  1. PROAIR HFA [Concomitant]
  2. FLOVENT [Suspect]
     Indication: WHEEZING
     Dosage: 1SPR TWICE PER DAY
     Route: 055
     Dates: start: 20110727, end: 20110728
  3. ALBUTEROL [Concomitant]

REACTIONS (3)
  - SPEECH DISORDER [None]
  - PRURITUS [None]
  - THROAT TIGHTNESS [None]
